FAERS Safety Report 9916840 (Version 1)
Quarter: 2014Q1

REPORT INFORMATION
  Report Type: Spontaneous
  Country: FR (occurrence: FR)
  Receive Date: 20140221
  Receipt Date: 20140221
  Transmission Date: 20141002
  Serious: Yes (Hospitalization)
  Sender: FDA-Public Use
  Company Number: FR-ENDO PHARMACEUTICALS INC.-FRVA20140008

PATIENT
  Sex: Female

DRUGS (3)
  1. FROVA TABLETS 2.5MG [Suspect]
     Indication: MIGRAINE
     Dosage: UNK
     Route: 048
     Dates: start: 2013
  2. XANAX [Suspect]
     Indication: PRODUCT USED FOR UNKNOWN INDICATION
     Dosage: UNK
     Route: 048
  3. XEROQUEL [Concomitant]
     Indication: DEPRESSION
     Dosage: UNK
     Route: 048

REACTIONS (3)
  - Gamma-glutamyltransferase increased [Unknown]
  - Pain [Recovering/Resolving]
  - Medication overuse headache [Recovering/Resolving]
